FAERS Safety Report 4357528-2 (Version None)
Quarter: 2004Q2

REPORT INFORMATION
  Report Type: 
  Country: None (occurrence: None)
  Receive Date: 20040510
  Receipt Date: 20040428
  Transmission Date: 20050107
  Serious: Yes (Hospitalization, Other)
  Sender: FDA-Public Use
  Company Number: FR-JNJFOC20040500287

PATIENT
  Sex: Female

DRUGS (2)
  1. REMICADE [Suspect]
     Indication: RHEUMATOID ARTHRITIS
     Dosage: 10 DOSES
     Dates: start: 20020101
  2. METHOTREXATE (METHOTREATE) [Concomitant]

REACTIONS (2)
  - INFUSION RELATED REACTION [None]
  - TUBERCULOSIS [None]
